FAERS Safety Report 5410475-7 (Version None)
Quarter: 2007Q3

REPORT INFORMATION
  Report Type: 
  Country: None (occurrence: None)
  Receive Date: 20070810
  Receipt Date: 20070104
  Transmission Date: 20080115
  Serious: No
  Sender: FDA-Public Use
  Company Number: A0634579A

PATIENT
  Sex: Female

DRUGS (7)
  1. PAXIL [Suspect]
     Indication: EMOTIONAL DISORDER
     Dosage: 20MG UNKNOWN
     Route: 048
     Dates: start: 20060401, end: 20061228
  2. ZETIA [Concomitant]
  3. CALCIUM + MAGNESIUM [Concomitant]
  4. MULTI-VITAMIN [Concomitant]
  5. TOPROL-XL [Concomitant]
  6. HYZAAR [Concomitant]
  7. UNKNOWN MEDICATION [Concomitant]

REACTIONS (4)
  - ARTHRALGIA [None]
  - DIARRHOEA [None]
  - PAIN IN EXTREMITY [None]
  - SLEEP DISORDER [None]
